FAERS Safety Report 17642038 (Version 1)
Quarter: 2020Q2

REPORT INFORMATION
  Report Type: Report from Study
  Country: US (occurrence: US)
  Receive Date: 20200408
  Receipt Date: 20200408
  Transmission Date: 20200713
  Serious: Yes (Other)
  Sender: FDA-Public Use
  Company Number: US-TAIHO ONCOLOGY  INC-EU-2020-01136

PATIENT
  Sex: Male
  Weight: 77.18 kg

DRUGS (3)
  1. LONSURF [Suspect]
     Active Substance: TIPIRACIL HYDROCHLORIDE\TRIFLURIDINE
     Indication: MIXED HEPATOCELLULAR CHOLANGIOCARCINOMA
  2. STIVARGA [Concomitant]
     Active Substance: REGORAFENIB
  3. LONSURF [Suspect]
     Active Substance: TIPIRACIL HYDROCHLORIDE\TRIFLURIDINE
     Indication: COLON CANCER
     Dosage: CYCLE UNKNOWN
     Route: 048

REACTIONS (2)
  - Optic neuropathy [Unknown]
  - Retinal infarction [Unknown]
